FAERS Safety Report 7639960-4 (Version None)
Quarter: 2011Q3

REPORT INFORMATION
  Report Type: 
  Country: None (occurrence: None)
  Receive Date: 20110727
  Receipt Date: 20110627
  Transmission Date: 20111222
  Serious: Yes (Other)
  Sender: FDA-Public Use
  Company Number: US-ASTRAZENECA-2011SE39297

PATIENT
  Age: 58 Year
  Sex: Female

DRUGS (2)
  1. LORTAB [Concomitant]
  2. NEXIUM [Suspect]
     Route: 048

REACTIONS (5)
  - ARTHRITIS [None]
  - NEUROPATHY PERIPHERAL [None]
  - FIBROMYALGIA [None]
  - DEAFNESS [None]
  - SYSTEMIC LUPUS ERYTHEMATOSUS [None]
